FAERS Safety Report 21676438 (Version 1)
Quarter: 2022Q4

REPORT INFORMATION
  Report Type: Spontaneous
  Country: FR (occurrence: FR)
  Receive Date: 20221202
  Receipt Date: 20221202
  Transmission Date: 20230113
  Serious: Yes (Other)
  Sender: FDA-Public Use
  Company Number: FR-AMERICAN REGENT INC-2022003383

PATIENT
  Age: 40 Year
  Sex: Female

DRUGS (1)
  1. FERINJECT [Suspect]
     Active Substance: FERRIC CARBOXYMALTOSE
     Indication: Anaemia of pregnancy
     Dosage: 1 GRAM, SINGLE
     Route: 042

REACTIONS (6)
  - Maternal exposure during pregnancy [Unknown]
  - Dyspnoea [Unknown]
  - Face oedema [Unknown]
  - Vomiting [Unknown]
  - Nausea [Unknown]
  - Product use issue [Unknown]
